FAERS Safety Report 9518876 (Version 2)
Quarter: 2013Q4

REPORT INFORMATION
  Report Type: Spontaneous
  Country: US (occurrence: None)
  Receive Date: 20130910
  Receipt Date: 20131029
  Transmission Date: 20140711
  Serious: Yes (Hospitalization)
  Sender: FDA-Public Use
  Company Number: ACO_38209_2013

PATIENT
  Age: 36 Year
  Sex: Female
  Weight: 70.7 kg

DRUGS (15)
  1. AMPYRA (DALFAMPRIDINE) TABLET, 10MG [Suspect]
     Indication: PRODUCT USED FOR UNKNOWN INDICATION
     Route: 048
     Dates: start: 201204
  2. CYMBALTA (DULOXETINE HYDROCHLORIDE) [Concomitant]
  3. CENTRUM SILVER (ASCORBIC ACID, CALCIUM MINERALS NOS, RETINOL, TOCOHERYL ACETATE, VITAMIN B NOS, VITAMINS NOS, ZINC) [Concomitant]
  4. LYRICA (PREGABALIN) [Concomitant]
  5. TRAMADOL (TRAMADOL HYDROCHLORIDE) [Concomitant]
  6. NORTRIPTYLINE HCL (NORTRIPTYLINE HYDROCHLORIDE) [Concomitant]
  7. CLONAZEPAM (CLONAZEPAM) (CLONAZEPAM) [Concomitant]
  8. OMEPRAZOLE (OMEPRAZOLE) [Concomitant]
  9. FISH OIL (FISH OIL)? [Concomitant]
  10. VITAMIN D (ERGOCALCIFEROL) [Concomitant]
  11. OMEGA 3 (FISH OIL) [Concomitant]
  12. TYLENOL (PARACETAMOL) [Concomitant]
  13. PROBIOTIC ACIDOPHILUS (LACTOBACILLUS ACIDOPHILUS) [Concomitant]
  14. NUVIGIL (ARMODAFINIL) [Concomitant]
  15. TIZANIDINE (TIZANIDINE HYDROCHLORIDE) [Concomitant]

REACTIONS (11)
  - Sepsis [None]
  - Kidney infection [None]
  - Cystitis [None]
  - Nephrolithiasis [None]
  - Infectious mononucleosis [None]
  - Intervertebral disc protrusion [None]
  - Urinary tract infection [None]
  - Back pain [None]
  - Multiple sclerosis relapse [None]
  - Balance disorder [None]
  - Drug dose omission [None]
